FAERS Safety Report 26143875 (Version 1)
Quarter: 2025Q4

REPORT INFORMATION
  Report Type: Other
  Country: EU (occurrence: EU)
  Receive Date: 20251211
  Receipt Date: 20251211
  Transmission Date: 20260118
  Serious: Yes (Hospitalization)
  Sender: Atnahs Healthcare
  Company Number: None

PATIENT

DRUGS (2)
  1. NAPROXEN [Suspect]
     Active Substance: NAPROXEN
     Indication: Pain
     Dosage: 550 MG X 2/J
     Route: 048
     Dates: start: 20250401, end: 20250901
  2. COSENTYX [Suspect]
     Active Substance: SECUKINUMAB
     Indication: Ankylosing spondylitis
     Dosage: 300 MG/SEMAINE PENDANT 5 SEMAINES, PUIS 1 INJECTION PAR MOIS.
     Route: 030
     Dates: start: 20250401, end: 20250910

REACTIONS (1)
  - Mastoiditis [Recovering/Resolving]

NARRATIVE: CASE EVENT DATE: 20250901
